FAERS Safety Report 19726311 (Version 1)
Quarter: 2021Q3

REPORT INFORMATION
  Report Type: Spontaneous
  Country: US (occurrence: US)
  Receive Date: 20210819
  Receipt Date: 20210819
  Transmission Date: 20211014
  Serious: No
  Sender: FDA-Public Use
  Company Number: None

PATIENT
  Age: 86 Year
  Sex: Male

DRUGS (1)
  1. ?ALBUTEROL SULFATE INHALATION SOL, 2.5 MG NEPHRON PHARMACEUTICALS CORP [Suspect]
     Active Substance: ALBUTEROL SULFATE
     Indication: ATRIAL FIBRILLATION
     Route: 048
     Dates: start: 20130101

REACTIONS (3)
  - Peripheral swelling [None]
  - Rash [None]
  - Oedema peripheral [None]

NARRATIVE: CASE EVENT DATE: 20210608
